FAERS Safety Report 9570008 (Version 2)
Quarter: 2013Q4

REPORT INFORMATION
  Report Type: Spontaneous
  Country: US (occurrence: US)
  Receive Date: 20130930
  Receipt Date: 20131106
  Transmission Date: 20140711
  Serious: No
  Sender: FDA-Public Use
  Company Number: US-AMGEN-USASP2013064358

PATIENT
  Age: 54 Year
  Sex: Female

DRUGS (2)
  1. ENBREL [Suspect]
     Indication: PSORIATIC ARTHROPATHY
     Dosage: UNK
     Route: 065
     Dates: start: 20121001, end: 20130817
  2. METHOTREXATE [Concomitant]
     Dosage: UNK

REACTIONS (2)
  - Oropharyngeal pain [Not Recovered/Not Resolved]
  - Impaired healing [Not Recovered/Not Resolved]
